FAERS Safety Report 15851498 (Version 1)
Quarter: 2019Q1

REPORT INFORMATION
  Report Type: Spontaneous
  Country: FR (occurrence: FR)
  Receive Date: 20190122
  Receipt Date: 20190122
  Transmission Date: 20190417
  Serious: Yes (Other)
  Sender: FDA-Public Use
  Company Number: FR-AUROBINDO-AUR-APL-2019-002643

PATIENT
  Age: 36 Year
  Sex: Male

DRUGS (1)
  1. FINASTERIDE TABLETS [Suspect]
     Active Substance: FINASTERIDE
     Indication: ALOPECIA
     Dosage: 1 MILLIGRAM, DAILY
     Route: 048

REACTIONS (7)
  - Gynaecomastia [Recovered/Resolved]
  - Breast tenderness [Unknown]
  - Testicular pain [Recovered/Resolved]
  - Breast enlargement [Unknown]
  - Leydig cell tumour of the testis [Recovered/Resolved]
  - Hypertrophy [Recovered/Resolved]
  - Genital lesion [Recovered/Resolved]
